FAERS Safety Report 15667651 (Version 1)
Quarter: 2018Q4

REPORT INFORMATION
  Report Type: Spontaneous
  Country: IT (occurrence: IT)
  Receive Date: 20181128
  Receipt Date: 20181128
  Transmission Date: 20190205
  Serious: Yes (Hospitalization)
  Sender: FDA-Public Use
  Company Number: PHHY2018IT157198

PATIENT
  Age: 68 Year
  Sex: Female

DRUGS (2)
  1. PACLITAXEL. [Suspect]
     Active Substance: PACLITAXEL
     Indication: PANCREATIC CARCINOMA METASTATIC
     Dosage: 125 MG, UNK (ON DAYS 1, 8 AND 15 EVERY 4 WEEKS, FOR 12 CYCLES)
     Route: 065
  2. GEMCITABINE HYDROCHLORIDE. [Suspect]
     Active Substance: GEMCITABINE HYDROCHLORIDE
     Indication: PANCREATIC CARCINOMA METASTATIC
     Dosage: 1000 MG/M2, UNK (3 CYCLES OF WEEKLY GEMCITABINE,ON DAYS 1, 8 AND 15 EVERY 4 WEEKS)
     Route: 065

REACTIONS (1)
  - Organising pneumonia [Recovered/Resolved]
